FAERS Safety Report 6570663-3 (Version None)
Quarter: 2010Q1

REPORT INFORMATION
  Report Type: 
  Country: None (occurrence: None)
  Receive Date: 20100204
  Receipt Date: 20100202
  Transmission Date: 20100710
  Serious: Yes (Death)
  Sender: FDA-Public Use
  Company Number: A0836292A

PATIENT
  Sex: Female
  Weight: 54 kg

DRUGS (3)
  1. ZOFRAN [Suspect]
     Indication: CHEMOTHERAPY
     Dosage: 8MG FOUR TIMES PER DAY
     Route: 048
     Dates: start: 20091216
  2. OMEPRAZOL [Concomitant]
     Dosage: 1TAB PER DAY
     Dates: start: 20040101
  3. PARACETAMOL [Concomitant]
     Indication: PAIN
     Dosage: 1TAB AS REQUIRED
     Route: 048
     Dates: start: 20040101

REACTIONS (4)
  - DISEASE PROGRESSION [None]
  - METASTATIC NEOPLASM [None]
  - OEDEMA PERIPHERAL [None]
  - POLLAKIURIA [None]
